FAERS Safety Report 8142374-4 (Version None)
Quarter: 2012Q1

REPORT INFORMATION
  Report Type: 
  Country: None (occurrence: None)
  Receive Date: 20120216
  Receipt Date: 20120210
  Transmission Date: 20120608
  Serious: Yes (Other)
  Sender: FDA-Public Use
  Company Number: PHHY2012MX012437

PATIENT
  Sex: Male

DRUGS (2)
  1. STALEVO 100 [Suspect]
     Dosage: 1 DF (200/50/12.5 MG), UNK
     Dates: start: 20050101
  2. DIOVAN HCT [Suspect]
     Indication: HYPERTENSION
     Dosage: 2 DF (160/12.5 MG), DAILY
     Route: 048
     Dates: start: 20090101

REACTIONS (1)
  - HIP FRACTURE [None]
